FAERS Safety Report 7125530-3 (Version None)
Quarter: 2010Q4

REPORT INFORMATION
  Report Type: 
  Country: None (occurrence: None)
  Receive Date: 20101129
  Receipt Date: 20101117
  Transmission Date: 20110411
  Serious: Yes (Other)
  Sender: FDA-Public Use
  Company Number: JP-ROCHE-738267

PATIENT
  Age: 60 Year
  Sex: Male

DRUGS (5)
  1. AVASTIN [Suspect]
     Indication: COLON CANCER METASTATIC
     Dosage: NOTE: DOSAGE IS UNCERTAIN.
     Route: 041
  2. OXALIPLATIN [Suspect]
     Indication: COLON CANCER METASTATIC
     Dosage: NOTE: DOSAGE IS UNCERTAIN
     Route: 041
  3. LEUCOVORIN [Suspect]
     Indication: COLON CANCER METASTATIC
     Dosage: NOTE: DOSAGE IS UNCERTAIN
     Route: 041
  4. FLUOROURACIL [Suspect]
     Indication: COLON CANCER METASTATIC
     Dosage: NOTE: DOSAGE IS UNCERTAIN, ROUTE: INTRAVENOUS DRIP
     Route: 042
  5. FLUOROURACIL [Suspect]
     Dosage: NOTE: DOSAGE IS UNCERTAIN, ROUTE: INTRAVENOUS BOLUS
     Route: 042

REACTIONS (1)
  - LEUKOCYTOCLASTIC VASCULITIS [None]
